FAERS Safety Report 11290446 (Version 1)
Quarter: 2015Q3

REPORT INFORMATION
  Report Type: Spontaneous
  Country: US (occurrence: US)
  Receive Date: 20150722
  Receipt Date: 20150722
  Transmission Date: 20151125
  Serious: No
  Sender: FDA-Public Use
  Company Number: PHEH2015US006401

PATIENT

DRUGS (1)
  1. ZELNORM [Suspect]
     Active Substance: TEGASEROD MALEATE
     Indication: IRRITABLE BOWEL SYNDROME
     Route: 065

REACTIONS (2)
  - Dyspnoea [Unknown]
  - Dizziness [Unknown]
